FAERS Safety Report 5839359-7 (Version None)
Quarter: 2008Q3

REPORT INFORMATION
  Report Type: 
  Country: None (occurrence: None)
  Receive Date: 20080806
  Receipt Date: 20080729
  Transmission Date: 20090109
  Serious: Yes (Hospitalization)
  Sender: FDA-Public Use
  Company Number: TCI2008A03888

PATIENT
  Age: 71 Year
  Sex: Male

DRUGS (8)
  1. ACTOS [Suspect]
     Indication: TYPE 2 DIABETES MELLITUS
     Dosage: 15 MG (15 MG, 1D), PER ORAL
     Route: 048
     Dates: start: 20080321
  2. SULFONAMIDES, UREA DERIVATIVES [Concomitant]
  3. ANTIHYPERTENSIVES [Concomitant]
  4. CALCIUM CHANNEL BLOCKERS [Concomitant]
  5. ACE INHIBITOR NOS [Concomitant]
  6. ANGIOTENSIN II ANTAGONISTS [Concomitant]
  7. ANTITHROMBOTIC AGENTS [Concomitant]
  8. ANTIGOUT PREPARATIONS [Concomitant]

REACTIONS (2)
  - ALTERED STATE OF CONSCIOUSNESS [None]
  - CEREBRAL INFARCTION [None]
